FAERS Safety Report 7563144-1 (Version None)
Quarter: 2011Q2

REPORT INFORMATION
  Report Type: 
  Country: None (occurrence: None)
  Receive Date: 20110615
  Receipt Date: 20110608
  Transmission Date: 20111010
  Serious: Yes (Death, Hospitalization)
  Sender: FDA-Public Use
  Company Number: 2011001739

PATIENT
  Age: 83 Year
  Sex: Male
  Weight: 32.659 kg

DRUGS (12)
  1. ERLOTINIB HYDROCHLORIDE [Suspect]
     Indication: NON-SMALL CELL LUNG CANCER
     Dosage: 100 MG, UID/QD, ORAL
     Route: 046
     Dates: start: 20110406, end: 20110411
  2. ALLOPURINOL [Concomitant]
  3. COUMADIN [Concomitant]
  4. LASIX [Concomitant]
  5. POTASSIUM CHLORIDE [Concomitant]
  6. AZD6244 HYDROGEN SULFATE [Suspect]
     Indication: NON-SMALL CELL LUNG CANCER
     Dosage: 150 MG, ORAL
     Route: 048
     Dates: start: 20110406, end: 20110411
  7. SPIRIVA [Concomitant]
  8. CALCIUM +VIT D (CALCIUM, COLECALCIFEROL) [Concomitant]
  9. ENOXAPARIN SODIUM [Concomitant]
  10. ADVAIR (FLUTICASONE PROPIONATE, SALMETEROL) [Concomitant]
  11. METOPROLOL TARTRATE [Concomitant]
  12. GABAPENTIN [Concomitant]

REACTIONS (18)
  - RESPIRATORY FAILURE [None]
  - NO THERAPEUTIC RESPONSE [None]
  - HAEMOGLOBIN DECREASED [None]
  - DIARRHOEA [None]
  - VARICES OESOPHAGEAL [None]
  - HYPOXIA [None]
  - HYPOTENSION [None]
  - GASTRIC HAEMORRHAGE [None]
  - PLEURAL EFFUSION [None]
  - INTERNATIONAL NORMALISED RATIO INCREASED [None]
  - ACTIVATED PARTIAL THROMBOPLASTIN TIME PROLONGED [None]
  - GASTRIC ULCER [None]
  - HELICOBACTER INFECTION [None]
  - PULMONARY HYPERTENSION [None]
  - LUNG CONSOLIDATION [None]
  - ATELECTASIS [None]
  - RENAL FAILURE ACUTE [None]
  - PROTHROMBIN TIME PROLONGED [None]
